FAERS Safety Report 7694391 (Version 4)
Quarter: 2013Q1

REPORT INFORMATION
  Report Type: Spontaneous
  Country: NZ (occurrence: NZ)
  Receive Date: 20101206
  Receipt Date: 20130121
  Transmission Date: 20140127
  Serious: Yes (Death)
  Sender: FDA-Public Use
  Company Number: NZ-MYLANLABS-2010S1021587

PATIENT
  Age: 17 Year
  Sex: Male

DRUGS (4)
  1. FLUOXETINE [Suspect]
     Indication: DEPRESSION
     Route: 048
     Dates: start: 20070112, end: 20070731
  2. FLUOXETINE [Suspect]
     Indication: DEPRESSION
     Route: 048
     Dates: start: 20080305, end: 20080320
  3. CAFERGOT [Concomitant]
     Indication: MIGRAINE
     Route: 048
  4. PARAMAX [Concomitant]
     Indication: MIGRAINE
     Route: 048

REACTIONS (11)
  - Completed suicide [Fatal]
  - Intentional self-injury [Unknown]
  - Fatigue [Unknown]
  - Abnormal dreams [Unknown]
  - Hallucination [Unknown]
  - Akathisia [Unknown]
  - Aggression [Unknown]
  - Anger [Unknown]
  - Sexual dysfunction [Unknown]
  - Amnesia [Unknown]
  - Disturbance in attention [Unknown]
